FAERS Safety Report 24279504 (Version 1)
Quarter: 2024Q3

REPORT INFORMATION
  Report Type: Spontaneous
  Country: US (occurrence: US)
  Receive Date: 20240903
  Receipt Date: 20240903
  Transmission Date: 20241017
  Serious: Yes (Life-Threatening, Hospitalization)
  Sender: BRISTOL MYERS SQUIBB
  Company Number: US-BRISTOL-MYERS SQUIBB COMPANY-2024-139736

PATIENT
  Age: 75 Year
  Sex: Male

DRUGS (1)
  1. POMALYST [Suspect]
     Active Substance: POMALIDOMIDE
     Indication: Plasma cell myeloma
     Dosage: D1-21 Q 28 DAYS
     Route: 048
     Dates: start: 20240513

REACTIONS (1)
  - Hospitalisation [Unknown]
